FAERS Safety Report 5803106-5 (Version None)
Quarter: 2008Q2

REPORT INFORMATION
  Report Type: 
  Country: None (occurrence: None)
  Receive Date: 20080626
  Receipt Date: 20070926
  Transmission Date: 20081010
  Serious: Yes (Life-Threatening, Hospitalization)
  Sender: FDA-Public Use
  Company Number: VISP-PR-0709S-0434

PATIENT
  Age: 57 Year
  Sex: Female
  Weight: 113.3993 kg

DRUGS (4)
  1. VISIPAQUE [Suspect]
     Indication: ABDOMINAL PAIN UPPER
     Dosage: 100 ML, SINGLE DOSE, I.V.
     Route: 042
     Dates: start: 20070713, end: 20070713
  2. VISIPAQUE [Suspect]
     Indication: INVESTIGATION
     Dosage: 100 ML, SINGLE DOSE, I.V.
     Route: 042
     Dates: start: 20070713, end: 20070713
  3. UNSPECIFIED H1 BLOCKERS [Concomitant]
  4. PREDNISONE [Concomitant]

REACTIONS (1)
  - ANAPHYLACTOID REACTION [None]
